FAERS Safety Report 5444801-X (Version None)
Quarter: 2007Q3

REPORT INFORMATION
  Report Type: 
  Country: None (occurrence: None)
  Receive Date: 20070906
  Receipt Date: 20070322
  Transmission Date: 20080115
  Serious: No
  Sender: FDA-Public Use
  Company Number: A0644291A

PATIENT
  Sex: Female

DRUGS (2)
  1. REQUIP [Suspect]
     Indication: RESTLESS LEGS SYNDROME
     Dosage: 1MG AT NIGHT
     Route: 048
  2. ANTIHYPERTENSIVES [Concomitant]

REACTIONS (1)
  - ABNORMAL DREAMS [None]
